APPROVED DRUG PRODUCT: PEPCID COMPLETE
Active Ingredient: CALCIUM CARBONATE; FAMOTIDINE; MAGNESIUM HYDROXIDE
Strength: 800MG;10MG;165MG
Dosage Form/Route: TABLET, CHEWABLE;ORAL
Application: N020958 | Product #001
Applicant: KENVUE BRANDS LLC
Approved: Oct 16, 2000 | RLD: Yes | RS: Yes | Type: OTC